FAERS Safety Report 6475521-0 (Version None)
Quarter: 2009Q4

REPORT INFORMATION
  Report Type: 
  Country: None (occurrence: None)
  Receive Date: 20091204
  Receipt Date: 20091130
  Transmission Date: 20100525
  Serious: Yes (Other)
  Sender: FDA-Public Use
  Company Number: PHHY2009DE52795

PATIENT
  Sex: Female
  Weight: 75 kg

DRUGS (4)
  1. CGS 20267 T30748+ [Suspect]
     Indication: BREAST CANCER
     Dosage: 2.5 MG DAILY
     Route: 048
     Dates: start: 20090815
  2. BLOPRESS PLUS [Concomitant]
     Dosage: 1X1
     Dates: start: 20090201
  3. LEVOTHYROXINE SODIUM [Concomitant]
     Dosage: 125 UG DAILY
     Dates: start: 19950101
  4. ASPIRIN [Concomitant]
     Dosage: 0-1-0
     Dates: start: 20050601

REACTIONS (2)
  - HERPES ZOSTER [None]
  - RETINAL DETACHMENT [None]
